FAERS Safety Report 13840169 (Version 1)
Quarter: 2017Q3

REPORT INFORMATION
  Report Type: Spontaneous
  Country: FR (occurrence: FR)
  Receive Date: 20170807
  Receipt Date: 20170807
  Transmission Date: 20171127
  Serious: Yes (Congenital Anomaly, Other)
  Sender: FDA-Public Use
  Company Number: FR-GLAXOSMITHKLINE-FR2017GSK119883

PATIENT
  Sex: Male
  Weight: 10 kg

DRUGS (2)
  1. LAMICTAL [Suspect]
     Active Substance: LAMOTRIGINE
     Indication: EPILEPSY
     Dosage: 75 MG, BID
     Route: 064
  2. VIMPAT [Suspect]
     Active Substance: LACOSAMIDE
     Indication: EPILEPSY
     Dosage: 200 MG, BID
     Route: 064

REACTIONS (4)
  - Hypospadias [Unknown]
  - Foetal macrosomia [Unknown]
  - Congenital pyelocaliectasis [Recovered/Resolved]
  - Foetal exposure during pregnancy [Unknown]
